FAERS Safety Report 7601957-8 (Version None)
Quarter: 2011Q3

REPORT INFORMATION
  Report Type: 
  Country: None (occurrence: None)
  Receive Date: 20110711
  Receipt Date: 20110707
  Transmission Date: 20111222
  Serious: Yes (Hospitalization, Other)
  Sender: FDA-Public Use
  Company Number: DE-PFIZER INC-2011152452

PATIENT
  Age: 64 Year
  Sex: Male

DRUGS (3)
  1. TAMSULOSIN [Concomitant]
     Dosage: 0.4 MG, UNK
     Route: 048
  2. TRIMINEURIN [Concomitant]
     Dosage: UNK
     Dates: end: 20100524
  3. ZOLOFT [Suspect]
     Dosage: 25 MG, 1X/DAY
     Route: 048
     Dates: start: 20100525, end: 20100602

REACTIONS (7)
  - HYPONATRAEMIA [None]
  - DIZZINESS [None]
  - CONFUSIONAL STATE [None]
  - GRAND MAL CONVULSION [None]
  - VOMITING [None]
  - HYPERTENSIVE CRISIS [None]
  - ATAXIA [None]
